FAERS Safety Report 8954992 (Version 1)
Quarter: 2012Q4

REPORT INFORMATION
  Report Type: 
  Country: CA (occurrence: CA)
  Receive Date: 20121207
  Receipt Date: 20121207
  Transmission Date: 20130627
  Serious: Yes (Other)
  Sender: FDA-Public Use
  Company Number: CHPA2012CA024897

PATIENT
  Age: 49 Year
  Sex: Female

DRUGS (3)
  1. HABITROL [Suspect]
     Indication: SMOKING CESSATION THERAPY
     Dosage: 21 mg, QD
     Route: 062
     Dates: start: 20121101
  2. HABITROL [Suspect]
     Dosage: 21 mg, QD
     Route: 062
  3. THRIVE [Suspect]
     Indication: SMOKING CESSATION THERAPY
     Dosage: 10 DF, QD
     Route: 048
     Dates: start: 20121101

REACTIONS (3)
  - Lower respiratory tract infection [Not Recovered/Not Resolved]
  - Overdose [Unknown]
  - Treatment noncompliance [Unknown]
